FAERS Safety Report 14821797 (Version 1)
Quarter: 2018Q2

REPORT INFORMATION
  Report Type: Spontaneous
  Country: US (occurrence: US)
  Receive Date: 20180427
  Receipt Date: 20180427
  Transmission Date: 20180711
  Serious: Yes (Hospitalization, Other)
  Sender: FDA-Public Use
  Company Number: US-THE PROACTIV LLC-2046751

PATIENT
  Sex: Female

DRUGS (5)
  1. PROACTIV MD ADAPALENE ACNE TREATMENT [Concomitant]
     Active Substance: ADAPALENE
     Route: 061
  2. PROACTIV DEEP CLEANSING WASH [Suspect]
     Active Substance: SALICYLIC ACID
     Route: 061
  3. PROACTIV MD DAILY OIL CONTROL SPF30 [Concomitant]
     Route: 061
  4. PROACTIV SOLUTION BLACKHEAD DISSOLVING [Suspect]
     Active Substance: SALICYLIC ACID
     Indication: ACNE
     Route: 061
  5. PROACTIV MD DEEP CLEANSING FACE WASH [Suspect]
     Active Substance: COSMETICS
     Route: 061

REACTIONS (4)
  - Chemical burn of skin [Unknown]
  - Swelling face [Unknown]
  - Rash [Unknown]
  - Acne [Unknown]
